FAERS Safety Report 21800223 (Version 1)
Quarter: 2022Q4

REPORT INFORMATION
  Report Type: Spontaneous
  Country: CN (occurrence: CN)
  Receive Date: 20221230
  Receipt Date: 20221230
  Transmission Date: 20230113
  Serious: No
  Sender: FDA-Public Use
  Company Number: CN-CSTONE PHARMACEUTICALS (SUZHOU) CO., LTD.-2022CN01991

PATIENT
  Age: 56 Year
  Sex: Male
  Weight: 72 kg

DRUGS (1)
  1. AYVAKIT [Suspect]
     Active Substance: AVAPRITINIB
     Indication: Acute myeloid leukaemia
     Dosage: 100 MILLIGRAM, QD
     Route: 048
     Dates: start: 20221104, end: 20221126

REACTIONS (1)
  - Conjunctival haemorrhage [Recovering/Resolving]

NARRATIVE: CASE EVENT DATE: 20221124
